FAERS Safety Report 24032978 (Version 5)
Quarter: 2024Q3

REPORT INFORMATION
  Report Type: Spontaneous
  Country: EG (occurrence: EG)
  Receive Date: 20240701
  Receipt Date: 20240819
  Transmission Date: 20241016
  Serious: Yes (Life-Threatening, Other)
  Sender: NOVO NORDISK
  Company Number: EG-NOVOPROD-1245573

PATIENT
  Sex: Female
  Weight: 65 kg

DRUGS (10)
  1. NOVORAPID [Suspect]
     Active Substance: INSULIN ASPART
     Indication: Type 1 diabetes mellitus
     Dosage: WITH THE CORRECTION DOSES AS AFTER 50 IU OF THE INSULIN PATIENT GETS ANOTHER 1 U
     Route: 058
  2. NOVORAPID [Suspect]
     Active Substance: INSULIN ASPART
     Dosage: 27 IU, QD (10 U,10 U, 7 U BEFORE EACH MEAL)
     Route: 058
  3. NOVORAPID [Suspect]
     Active Substance: INSULIN ASPART
     Dosage: WHEN PATIENT BGL IS 250 MG/DL PATIENT TAKES 2 INSULIN UNITS AS CORRECTION DOSES
     Route: 058
  4. NOVORAPID [Suspect]
     Active Substance: INSULIN ASPART
     Dosage: 17 IU, QD(07+07+03 IU PER MAIN MEAL RESPECTIVELY)
     Route: 058
  5. LANTUS [Concomitant]
     Active Substance: INSULIN GLARGINE
     Indication: Type 1 diabetes mellitus
     Dosage: 18 IU, QD (18 U DAILY/ IN 10 PM NIGHT)
     Route: 058
  6. LEVOTHYROXINE [Concomitant]
     Active Substance: LEVOTHYROXINE\LEVOTHYROXINE SODIUM
     Indication: Thyroid disorder
     Dosage: 1 AND HALF TAB (125 AND 50 CONCENTRATION)
     Route: 048
  7. MINOPHYLLINE [THEOPHYLLINE] [Concomitant]
     Indication: Asthma
     Dosage: UNK
     Route: 048
  8. ALBUTEROL SULFATE [Concomitant]
     Active Substance: ALBUTEROL SULFATE
     Indication: Asthma
     Dosage: UNK
     Route: 048
  9. GABAPENTIN [Concomitant]
     Active Substance: GABAPENTIN
     Indication: Mitral valve incompetence
     Dosage: 300- 400
  10. ASPIRIN [Concomitant]
     Active Substance: ASPIRIN
     Indication: Haemophilia
     Dosage: 1 TAB/DAY
     Route: 048

REACTIONS (6)
  - Diabetic coma [Recovered/Resolved]
  - Device failure [Unknown]
  - Device leakage [Unknown]
  - Product storage error [Unknown]
  - Blood glucose increased [Not Recovered/Not Resolved]
  - Device malfunction [Unknown]

NARRATIVE: CASE EVENT DATE: 20240701
